FAERS Safety Report 5297980-1 (Version None)
Quarter: 2007Q2

REPORT INFORMATION
  Report Type: 
  Country: None (occurrence: None)
  Receive Date: 20070416
  Receipt Date: 20070410
  Transmission Date: 20071010
  Serious: Yes (Death, Life-Threatening, Hospitalization)
  Sender: FDA-Public Use
  Company Number: PHEH2007US04760

PATIENT
  Age: 60 Year
  Sex: Female

DRUGS (1)
  1. ZELNORM [Suspect]

REACTIONS (5)
  - CHEST PAIN [None]
  - DEATH [None]
  - DYSPNOEA [None]
  - HEART RATE INCREASED [None]
  - LIFE SUPPORT [None]
